FAERS Safety Report 4853345-5 (Version None)
Quarter: 2005Q4

REPORT INFORMATION
  Report Type: 
  Country: None (occurrence: None)
  Receive Date: 20051212
  Receipt Date: 20051124
  Transmission Date: 20060501
  Serious: Yes (Life-Threatening)
  Sender: FDA-Public Use
  Company Number: 2005P1000582

PATIENT
  Age: 58 Year
  Sex: Male

DRUGS (8)
  1. NICARDIPINE HCL [Suspect]
     Indication: HYPERTENSION
     Dosage: IV
     Route: 042
     Dates: end: 20051031
  2. DILTIAZEM [Suspect]
     Indication: AORTIC DISSECTION
  3. CARVEDILOL [Concomitant]
  4. AMLODIPINE [Concomitant]
  5. ADALAT [Concomitant]
  6. CALSLOT [Concomitant]
  7. CARDENALIN [Concomitant]
  8. DILTIAZEM HCL [Concomitant]

REACTIONS (7)
  - CARDIAC ARREST [None]
  - COMA [None]
  - DEPRESSED LEVEL OF CONSCIOUSNESS [None]
  - HYPERTENSION [None]
  - HYPONATRAEMIA [None]
  - PHLEBITIS [None]
  - RESUSCITATION [None]
